FAERS Safety Report 22061778 (Version 6)
Quarter: 2023Q2

REPORT INFORMATION
  Report Type: Report from Study
  Country: US (occurrence: US)
  Receive Date: 20230304
  Receipt Date: 20230609
  Transmission Date: 20230721
  Serious: Yes (Other)
  Sender: FDA-Public Use
  Company Number: US-002147023-NVSC2023US049285

PATIENT
  Sex: Female

DRUGS (7)
  1. ENTRESTO [Suspect]
     Active Substance: SACUBITRIL\VALSARTAN
     Indication: Product used for unknown indication
     Dosage: 1 DOSAGE FORM, QD (24/26 MG)
     Route: 048
  2. ENTRESTO [Suspect]
     Active Substance: SACUBITRIL\VALSARTAN
     Dosage: 1 DOSAGE FORM, QD (24/26 MG)
     Route: 048
     Dates: start: 20230201
  3. AMLODIPINE [Suspect]
     Active Substance: AMLODIPINE BESYLATE
     Indication: Product used for unknown indication
     Dosage: UNK
     Route: 065
  4. LISINOPRIL [Suspect]
     Active Substance: LISINOPRIL
     Indication: Product used for unknown indication
     Dosage: UNK
     Route: 065
  5. SPIRONOLACTONE [Suspect]
     Active Substance: SPIRONOLACTONE
     Indication: Product used for unknown indication
     Dosage: UNK
     Route: 065
  6. GABAPENTIN [Suspect]
     Active Substance: GABAPENTIN
     Indication: Product used for unknown indication
     Dosage: UNK
     Route: 065
  7. LASIX [Suspect]
     Active Substance: FUROSEMIDE
     Indication: Product used for unknown indication
     Dosage: UNK
     Route: 065

REACTIONS (24)
  - Renal impairment [Unknown]
  - Suicidal ideation [Unknown]
  - Asthenia [Unknown]
  - Hypotension [Recovering/Resolving]
  - Dizziness [Unknown]
  - Myalgia [Unknown]
  - Arthralgia [Unknown]
  - Back pain [Unknown]
  - Blood glucose decreased [Unknown]
  - Lower respiratory tract infection [Unknown]
  - Pollakiuria [Unknown]
  - Swelling [Unknown]
  - Ill-defined disorder [Unknown]
  - Metabolic acidosis [Unknown]
  - Dyspnoea [Unknown]
  - Haematocrit increased [Unknown]
  - Depression [Unknown]
  - Erythema [Unknown]
  - Haemoglobin increased [Unknown]
  - Pain [Unknown]
  - Neuroendocrine tumour [Unknown]
  - Wrong technique in product usage process [Unknown]
  - Contraindicated product administered [Unknown]
  - Inappropriate schedule of product administration [Unknown]
